FAERS Safety Report 13406998 (Version 1)
Quarter: 2017Q2

REPORT INFORMATION
  Report Type: Spontaneous
  Country: US (occurrence: US)
  Receive Date: 20170405
  Receipt Date: 20170405
  Transmission Date: 20170830
  Serious: No
  Sender: FDA-Public Use
  Company Number: US-MEDA-2017030076

PATIENT
  Age: 69 Year
  Sex: Male
  Weight: 104 kg

DRUGS (2)
  1. FENOFIBRATE. [Concomitant]
     Active Substance: FENOFIBRATE
  2. MUSE [Suspect]
     Active Substance: ALPROSTADIL
     Indication: ERECTILE DYSFUNCTION
     Route: 066
     Dates: start: 20170318

REACTIONS (1)
  - Drug ineffective [Unknown]

NARRATIVE: CASE EVENT DATE: 20170318
